FAERS Safety Report 19741424 (Version 1)
Quarter: 2021Q3

REPORT INFORMATION
  Report Type: Spontaneous
  Country: FR (occurrence: FR)
  Receive Date: 20210825
  Receipt Date: 20210825
  Transmission Date: 20211014
  Serious: Yes (Hospitalization, Other)
  Sender: FDA-Public Use
  Company Number: FR-AUROBINDO-AUR-APL-2021-034853

PATIENT
  Age: 73 Year
  Sex: Female

DRUGS (1)
  1. OLANZAPINE. [Suspect]
     Active Substance: OLANZAPINE
     Indication: DELUSIONAL DISORDER, UNSPECIFIED TYPE
     Dosage: 5 MILLIGRAM, ONCE A DAY
     Route: 065

REACTIONS (3)
  - Back pain [Recovered/Resolved]
  - Rhabdomyolysis [Recovered/Resolved]
  - Camptocormia [Recovered/Resolved]
